FAERS Safety Report 19129906 (Version 2)
Quarter: 2021Q2

REPORT INFORMATION
  Report Type: Spontaneous
  Country: JP (occurrence: JP)
  Receive Date: 20210414
  Receipt Date: 20210513
  Transmission Date: 20210717
  Serious: No
  Sender: FDA-Public Use
  Company Number: JP-LUPIN PHARMACEUTICALS INC.-2021-04454

PATIENT
  Age: 31 Year
  Sex: Female

DRUGS (1)
  1. POTASSIUM [Suspect]
     Active Substance: POTASSIUM
     Indication: HYPERTHYROIDISM
     Dosage: UNK
     Route: 065

REACTIONS (1)
  - Exposure during pregnancy [Unknown]
